FAERS Safety Report 6108354-5 (Version None)
Quarter: 2009Q1

REPORT INFORMATION
  Report Type: 
  Country: None (occurrence: None)
  Receive Date: 20090309
  Receipt Date: 20090218
  Transmission Date: 20090719
  Serious: Yes (Other)
  Sender: FDA-Public Use
  Company Number: AU-PFIZER INC-2009171407

PATIENT

DRUGS (1)
  1. CABERGOLINE [Suspect]
     Dosage: 1 MG, 1X/DAY

REACTIONS (2)
  - AMNESIA [None]
  - SLEEP ATTACKS [None]
